FAERS Safety Report 18461517 (Version 1)
Quarter: 2020Q4

REPORT INFORMATION
  Report Type: Spontaneous
  Country: US (occurrence: US)
  Receive Date: 20201104
  Receipt Date: 20201104
  Transmission Date: 20210114
  Serious: Yes (Other)
  Sender: FDA-Public Use
  Company Number: US-EMCURE PHARMACEUTICALS LTD-2020-EPL-001682

PATIENT
  Age: 64 Year
  Sex: Female

DRUGS (2)
  1. VERAPAMIL HYDROCHLORIDE. [Suspect]
     Active Substance: VERAPAMIL HYDROCHLORIDE
     Dosage: 80 MILLIGRAM
  2. VERAPAMIL HYDROCHLORIDE. [Suspect]
     Active Substance: VERAPAMIL HYDROCHLORIDE
     Indication: REVERSIBLE CEREBRAL VASOCONSTRICTION SYNDROME

REACTIONS (3)
  - Dizziness [Unknown]
  - Drug intolerance [Unknown]
  - Bradycardia [Unknown]
